FAERS Safety Report 7632442-5 (Version None)
Quarter: 2011Q3

REPORT INFORMATION
  Report Type: 
  Country: None (occurrence: None)
  Receive Date: 20110725
  Receipt Date: 20100909
  Transmission Date: 20111222
  Serious: Yes (Other)
  Sender: FDA-Public Use
  Company Number: US-BRISTOL-MYERS SQUIBB COMPANY-15278302

PATIENT
  Age: 66 Year
  Sex: Female
  Weight: 68 kg

DRUGS (13)
  1. LUMIGAN [Concomitant]
  2. VERAPAMIL [Concomitant]
     Dosage: VERAPAMIL 240 MG ER Q PM
  3. MULTI-VITAMIN [Concomitant]
  4. LOVAZA [Concomitant]
     Dosage: 1DF=4 CAPS DOSE NOT GIVEN.
  5. OCUPRESS [Concomitant]
  6. COUMADIN [Suspect]
     Indication: ATRIAL FIBRILLATION
     Dosage: COUMADIN IN 2003 OR 2004
     Dates: start: 20030101
  7. ASPIRIN [Concomitant]
  8. NIACIN [Concomitant]
     Dosage: NIACIN 500 MG Q PM
  9. CALCIUM CARBONATE [Concomitant]
  10. VITAMIN D [Concomitant]
  11. LANOXIN [Concomitant]
     Dosage: 1DF= 0.25 (DOSE NOT SPECIFIED)
  12. MAXZIDE [Concomitant]
     Dosage: 1DF= 75/50(DOSE NOT SPECIFIED)
  13. POTASSIUM CHLORIDE [Concomitant]
     Dosage: 1DF= 5 CAPS(DOSE NOT SPECIFIED)

REACTIONS (2)
  - CEREBROVASCULAR ACCIDENT [None]
  - RASH PRURITIC [None]
